FAERS Safety Report 8417597 (Version 3)
Quarter: 2013Q1

REPORT INFORMATION
  Report Type: Spontaneous
  Country: US (occurrence: US)
  Receive Date: 20120221
  Receipt Date: 20130125
  Transmission Date: 20140127
  Serious: No
  Sender: FDA-Public Use
  Company Number: US-PFIZER INC-2012042099

PATIENT
  Age: 67 Year
  Sex: Male
  Weight: 108 kg

DRUGS (13)
  1. SUTENT [Suspect]
     Indication: RENAL CANCER
     Dosage: 12.5 MG, TAKE 4 CAPSULES (50 MG) DAILY
     Route: 048
  2. SUTENT [Suspect]
     Dosage: 37.5 MG, DAILY
  3. SUTENT [Suspect]
     Dosage: 37.5 MG, 1X/DAY
     Route: 048
     Dates: start: 20111220, end: 20130114
  4. NYSTATIN [Concomitant]
  5. NITROGLYCERIN [Concomitant]
  6. GLIMEPIRIDE [Concomitant]
  7. JANUVIA [Concomitant]
  8. LIPITOR [Concomitant]
  9. PLAVIX [Concomitant]
  10. COUMADIN [Concomitant]
  11. ASPIRIN [Concomitant]
     Dosage: 81 MG, UNK
  12. LISINOPRIL [Concomitant]
  13. ATENOLOL [Concomitant]
     Dosage: UNK

REACTIONS (13)
  - Epistaxis [Unknown]
  - Stomatitis [Unknown]
  - Oropharyngeal pain [Unknown]
  - Deep vein thrombosis [Unknown]
  - Palmar-plantar erythrodysaesthesia syndrome [Unknown]
  - Blister [Unknown]
  - Dysgeusia [Unknown]
  - Dry skin [Unknown]
  - Rash [Unknown]
  - Local swelling [Unknown]
  - Oral pain [Unknown]
  - Influenza [Unknown]
  - Body height decreased [Unknown]
